FAERS Safety Report 20949480 (Version 1)
Quarter: 2022Q2

REPORT INFORMATION
  Report Type: Report from Study
  Country: CA (occurrence: CA)
  Receive Date: 20220613
  Receipt Date: 20220613
  Transmission Date: 20220721
  Serious: Yes (Other)
  Sender: FDA-Public Use
  Company Number: CA-CELLTRION INC.-2022CA009126

PATIENT

DRUGS (1)
  1. TRUXIMA [Suspect]
     Active Substance: RITUXIMAB-ABBS
     Indication: Anti-myelin-associated glycoprotein associated polyneuropathy
     Dosage: RITUXIMAB (375 MG/M2) 700 MG IV WEEKLY X 4 DOSES
     Route: 042

REACTIONS (2)
  - Anti-myelin-associated glycoprotein associated polyneuropathy [Unknown]
  - Off label use [Unknown]
